FAERS Safety Report 8998385 (Version 1)
Quarter: 2013Q1

REPORT INFORMATION
  Report Type: Spontaneous
  Country: US (occurrence: US)
  Receive Date: 20130103
  Receipt Date: 20130103
  Transmission Date: 20140127
  Serious: Yes (Hospitalization, Disabling, Other)
  Sender: FDA-Public Use
  Company Number: US-009507513-1111USA01293

PATIENT
  Sex: 0

DRUGS (16)
  1. FOSAMAX [Suspect]
     Indication: OSTEOPOROSIS
     Dosage: 5 MG, QD
     Route: 048
     Dates: start: 20001024
  2. FOSAMAX [Suspect]
     Dosage: 70 MG, QW
     Route: 048
     Dates: start: 2001
  3. FOSAMAX [Suspect]
     Dosage: 70 MG, QW
     Route: 048
     Dates: start: 20080825, end: 20081115
  4. EVISTA [Concomitant]
     Dosage: 60 MG, QD
     Dates: start: 20030618
  5. MK-0152 [Concomitant]
     Dosage: 12.5 MG, QD
     Dates: start: 1986
  6. INDERAL [Concomitant]
     Dosage: 20 MG, BID
     Dates: start: 1986
  7. ZOCOR [Concomitant]
     Route: 048
     Dates: start: 2006
  8. LIPITOR [Concomitant]
     Dates: start: 1996, end: 2006
  9. CLARINEX [Concomitant]
     Route: 048
     Dates: start: 200412, end: 200812
  10. GEMFIBROZIL [Concomitant]
     Dates: start: 200712, end: 200801
  11. SIMVASTATIN TABLETS, USP [Concomitant]
     Dosage: 20 MG, QD
     Dates: start: 200801
  12. CENTRUM (MINERALS (UNSPECIFIED) (+) VITAMINS (UNSPECIFIED)) [Concomitant]
     Dates: start: 1986, end: 201110
  13. CALCIUM (UNSPECIFIED) [Concomitant]
     Dates: start: 1996
  14. VASOTEC [Concomitant]
     Dosage: 5 MG, QD
     Route: 048
     Dates: start: 200809
  15. VASOTEC [Concomitant]
     Dosage: UNK
     Route: 048
     Dates: end: 1986
  16. ENALAPRIL MALEATE [Concomitant]

REACTIONS (39)
  - Femur fracture [Recovering/Resolving]
  - Intramedullary rod insertion [Recovering/Resolving]
  - Low turnover osteopathy [Not Recovered/Not Resolved]
  - Fracture reduction [Recovered/Resolved]
  - Colitis [Unknown]
  - Diverticulitis [Unknown]
  - Hypokalaemia [Unknown]
  - Portal vein thrombosis [Unknown]
  - Anaemia [Unknown]
  - Hyperalbuminaemia [Unknown]
  - Wrist fracture [Recovered/Resolved]
  - Fall [Unknown]
  - Foot fracture [Unknown]
  - Foot fracture [Unknown]
  - Foot fracture [Unknown]
  - Vitamin D deficiency [Unknown]
  - Pain [Unknown]
  - Infection [Unknown]
  - Infection [Unknown]
  - Deep vein thrombosis [Unknown]
  - Tenosynovitis [Unknown]
  - Synovitis [Unknown]
  - Tenosynovitis [Not Recovered/Not Resolved]
  - Foot fracture [Unknown]
  - Carpal tunnel syndrome [Unknown]
  - Ligament sprain [Unknown]
  - Hyperlipidaemia [Unknown]
  - Osteoarthritis [Unknown]
  - Osteoarthritis [Unknown]
  - Carpal tunnel syndrome [Unknown]
  - Gait disturbance [Unknown]
  - Osteopenia [Unknown]
  - Lumbar spinal stenosis [Unknown]
  - Spinal osteoarthritis [Unknown]
  - Intervertebral disc protrusion [Unknown]
  - Nerve degeneration [Unknown]
  - Pain in extremity [Unknown]
  - Rash [Unknown]
  - Arthralgia [Unknown]
